FAERS Safety Report 19133738 (Version 1)
Quarter: 2021Q2

REPORT INFORMATION
  Report Type: Spontaneous
  Country: US (occurrence: US)
  Receive Date: 20210413
  Receipt Date: 20210413
  Transmission Date: 20210717
  Serious: Yes (Hospitalization)
  Sender: FDA-Public Use
  Company Number: None

PATIENT
  Sex: Female

DRUGS (25)
  1. ASPIRIN LOW EC [Concomitant]
  2. COENZYME Q10 [Concomitant]
     Active Substance: DIETARY SUPPLEMENT\UBIDECARENONE
  3. LEVOFLOXACIN. [Concomitant]
     Active Substance: LEVOFLOXACIN
  4. MECLIZINE [Concomitant]
     Active Substance: MECLIZINE HYDROCHLORIDE
  5. SIMVASTATIN. [Concomitant]
     Active Substance: SIMVASTATIN
  6. DOXYCYC MONO [Concomitant]
     Active Substance: DOXYCYCLINE
  7. METFORMIN [Concomitant]
     Active Substance: METFORMIN HYDROCHLORIDE
  8. PREDNISONE. [Concomitant]
     Active Substance: PREDNISONE
  9. PULMOZYME [Suspect]
     Active Substance: DORNASE ALFA
     Indication: HYPOXIA
     Route: 055
     Dates: start: 20160107
  10. FISH OIL [Concomitant]
     Active Substance: FISH OIL
  11. FOLIC ACID. [Concomitant]
     Active Substance: FOLIC ACID
  12. TRIAMCINOLON CRE [Concomitant]
  13. VITAMIN D3 [Concomitant]
     Active Substance: CHOLECALCIFEROL
  14. BACLOFEN. [Concomitant]
     Active Substance: BACLOFEN
  15. LOSARTAN/HCT [Concomitant]
     Active Substance: HYDROCHLOROTHIAZIDE\LOSARTAN POTASSIUM
  16. PULMOZYME [Suspect]
     Active Substance: DORNASE ALFA
     Indication: CHRONIC RESPIRATORY FAILURE
     Route: 055
     Dates: start: 20160107
  17. PULMOZYME [Suspect]
     Active Substance: DORNASE ALFA
     Indication: HYPERCAPNIA
     Route: 055
     Dates: start: 20160107
  18. MAGNESIUM OX [Concomitant]
  19. PROMETH/COD [Concomitant]
  20. TOBRAMYCIN 300MG/5ML 20ML NEB [Suspect]
     Active Substance: TOBRAMYCIN
     Route: 055
     Dates: start: 20200925
  21. LOSARTAN POT [Concomitant]
     Active Substance: LOSARTAN POTASSIUM
  22. AMOX/K CLAV [Concomitant]
     Active Substance: AMOXICILLIN\CLAVULANATE POTASSIUM
  23. BROM/PSE/DM [Concomitant]
  24. HUMULIN R [Concomitant]
     Active Substance: INSULIN HUMAN
  25. CHLORTHALID [Concomitant]
     Active Substance: CHLORTHALIDONE

REACTIONS (1)
  - Spinal support [None]
